FAERS Safety Report 10257323 (Version 1)
Quarter: 2014Q2

REPORT INFORMATION
  Report Type: Spontaneous
  Country: US (occurrence: None)
  Receive Date: 20140623
  Receipt Date: 20140623
  Transmission Date: 20141212
  Serious: No
  Sender: FDA-Public Use
  Company Number: None

PATIENT
  Age: 38 Year
  Sex: Male
  Weight: 122.47 kg

DRUGS (13)
  1. LATUDA [Suspect]
     Indication: DEPRESSION
     Dosage: 40 MG PER TABLET PER DAY WITH FOOD BY MOUTH
     Route: 048
     Dates: start: 20140608
  2. LATUDA [Suspect]
     Indication: BIPOLAR I DISORDER
     Dosage: 40 MG PER TABLET PER DAY WITH FOOD BY MOUTH
     Route: 048
     Dates: start: 20140608
  3. DEPAKOTE ER(DIVALPROEX SODIUM) [Concomitant]
  4. ESCITALOPRAM [Concomitant]
  5. ZOCOR(SIMVASTATIN) [Concomitant]
  6. CLOTRIMAZOLE CREAM USP 1% [Concomitant]
  7. COQ10 [Concomitant]
  8. CREST PRO-HEALTH PRO-HEALTH SENSITIVE +ENAMEL SHIELD [Concomitant]
  9. FISH OIL [Concomitant]
  10. ONE (1) A DAY MEN^S MULTIVITAMIN/MULTIMINERAL SUPPLEMNT, MEN^S HEALTH FORMULA [Concomitant]
  11. ANTIFUNGAL CREAM(CLOTRIMAZOLE !%) [Concomitant]
  12. BAYER [Concomitant]
  13. OMEGA-3 [Concomitant]

REACTIONS (6)
  - Insomnia [None]
  - Affective disorder [None]
  - Alien limb syndrome [None]
  - Sensory disturbance [None]
  - Feeling jittery [None]
  - Paraesthesia [None]
